FAERS Safety Report 12474409 (Version 1)
Quarter: 2016Q2

REPORT INFORMATION
  Report Type: Spontaneous
  Country: US (occurrence: None)
  Receive Date: 20160616
  Receipt Date: 20160616
  Transmission Date: 20160815
  Serious: Yes (Hospitalization)
  Sender: FDA-Public Use
  Company Number: None

PATIENT
  Age: 80 Year
  Sex: Female
  Weight: 54.43 kg

DRUGS (3)
  1. CA+ CITRATE WITH VIT D [Concomitant]
  2. FAMVIR [Suspect]
     Active Substance: FAMCICLOVIR
     Indication: HERPES ZOSTER
     Dosage: 2 PILLS 3 X DAY BY MOUTH
     Route: 048
     Dates: start: 20151023, end: 20151028
  3. MULTIVITAMIN + MINERAL SUPPLEMENT [Concomitant]

REACTIONS (1)
  - Vocal cord paralysis [None]

NARRATIVE: CASE EVENT DATE: 20151028
